FAERS Safety Report 5261477-5 (Version None)
Quarter: 2007Q1

REPORT INFORMATION
  Report Type: 
  Country: None (occurrence: None)
  Receive Date: 20070307
  Receipt Date: 20070221
  Transmission Date: 20070707
  Serious: Yes (Life-Threatening, Hospitalization)
  Sender: FDA-Public Use
  Company Number: FSC_0068_2007

PATIENT
  Age: 53 Year
  Sex: Male

DRUGS (4)
  1. ISOPTIN [Suspect]
     Indication: TACHYCARDIA
     Dosage: 240 MG QDAY PO
     Route: 048
     Dates: start: 20070105, end: 20070101
  2. ISOPTIN [Suspect]
     Indication: TACHYCARDIA
     Dosage: 120 MG QDAY PO
     Route: 048
     Dates: start: 20070126
  3. FUROSEMIDE [Concomitant]
  4. DIAZEPAM [Concomitant]

REACTIONS (14)
  - BLOOD CREATININE INCREASED [None]
  - CARDIOGENIC SHOCK [None]
  - DILATATION VENTRICULAR [None]
  - DISTURBANCE IN ATTENTION [None]
  - HAEMODIALYSIS [None]
  - INCORRECT DOSE ADMINISTERED [None]
  - LUNG DISORDER [None]
  - MULTI-ORGAN FAILURE [None]
  - PLATELET COUNT DECREASED [None]
  - PLEURAL EFFUSION [None]
  - PORTAL HYPERTENSIVE GASTROPATHY [None]
  - SEPTIC SHOCK [None]
  - SOMNOLENCE [None]
  - STAPHYLOCOCCAL BACTERAEMIA [None]
